FAERS Safety Report 7515527-3 (Version None)
Quarter: 2011Q2

REPORT INFORMATION
  Report Type: 
  Country: None (occurrence: None)
  Receive Date: 20110601
  Receipt Date: 20110525
  Transmission Date: 20111010
  Serious: Yes (Hospitalization)
  Sender: FDA-Public Use
  Company Number: GB-AMGEN-GBRSP2011027223

PATIENT
  Sex: Female

DRUGS (5)
  1. NEULASTA [Suspect]
     Indication: CHEMOTHERAPY
  2. FLUOROURACIL [Concomitant]
  3. EPIRUBICIN [Concomitant]
  4. TAXOTERE [Concomitant]
  5. CYCLOPHOSPHAMIDE [Concomitant]

REACTIONS (2)
  - ORAL PAIN [None]
  - NEUTROPENIC SEPSIS [None]
